FAERS Safety Report 10093028 (Version 1)
Quarter: 2014Q2

REPORT INFORMATION
  Report Type: Spontaneous
  Country: US (occurrence: US)
  Receive Date: 20140421
  Receipt Date: 20140421
  Transmission Date: 20141212
  Serious: No
  Sender: FDA-Public Use
  Company Number: US-SA-2013SA098274

PATIENT
  Sex: Female

DRUGS (3)
  1. ALLEGRA [Suspect]
     Dosage: DOSE -- 180 MG / 4 TABLETS DOSE:180 UNIT(S)
     Route: 048
  2. IBUPROFEN [Suspect]
     Route: 065
  3. AMPICILLIN [Suspect]
     Route: 065

REACTIONS (2)
  - Abnormal behaviour [Unknown]
  - Extra dose administered [Unknown]
